FAERS Safety Report 5491601-0 (Version None)
Quarter: 2007Q4

REPORT INFORMATION
  Report Type: 
  Country: None (occurrence: None)
  Receive Date: 20071019
  Receipt Date: 20071019
  Transmission Date: 20080405
  Serious: Yes (Other)
  Sender: FDA-Public Use
  Company Number: None

PATIENT
  Age: 62 Year
  Sex: Female

DRUGS (6)
  1. CIPROFLOXACIN [Suspect]
     Dates: start: 20060403, end: 20060413
  2. ZOLOFT [Concomitant]
  3. LIPITOR [Concomitant]
  4. METFORMIN HCL [Concomitant]
  5. CELEBREX [Concomitant]
  6. BENAZEPRIL HYDROCHLORIDE [Concomitant]

REACTIONS (5)
  - BLOOD ALKALINE PHOSPHATASE INCREASED [None]
  - BLOOD GLUCOSE INCREASED [None]
  - HEPATOTOXICITY [None]
  - TRANSAMINASES INCREASED [None]
  - WEIGHT DECREASED [None]
